FAERS Safety Report 11712361 (Version 1)
Quarter: 2015Q4

REPORT INFORMATION
  Report Type: Spontaneous
  Country: US (occurrence: US)
  Receive Date: 20151104
  Receipt Date: 20151104
  Transmission Date: 20160304
  Serious: No
  Sender: FDA-Public Use
  Company Number: US-ELI_LILLY_AND_COMPANY-US201106006453

PATIENT
  Age: 72 Year
  Sex: Female

DRUGS (1)
  1. FORTEO [Suspect]
     Active Substance: TERIPARATIDE
     Indication: OSTEOPOROSIS
     Dosage: 20 UG, QD
     Route: 065
     Dates: start: 20110303, end: 20110609

REACTIONS (19)
  - Pruritus [Recovering/Resolving]
  - Flatulence [Recovering/Resolving]
  - Muscle spasms [Recovered/Resolved]
  - Abdominal discomfort [Recovering/Resolving]
  - Gastrointestinal disorder [Recovering/Resolving]
  - Nausea [Recovering/Resolving]
  - Oral discomfort [Recovering/Resolving]
  - Dysgeusia [Recovering/Resolving]
  - Muscular weakness [Recovering/Resolving]
  - Dizziness [Recovered/Resolved]
  - Musculoskeletal chest pain [Recovering/Resolving]
  - Pain [Recovering/Resolving]
  - Neck pain [Recovering/Resolving]
  - Abdominal pain upper [Recovered/Resolved]
  - Breast cyst [Unknown]
  - Frequent bowel movements [Recovering/Resolving]
  - Malaise [Recovering/Resolving]
  - Abdominal pain [Unknown]
  - Vomiting [Recovering/Resolving]

NARRATIVE: CASE EVENT DATE: 201105
